FAERS Safety Report 5675837-1 (Version None)
Quarter: 2008Q2

REPORT INFORMATION
  Report Type: 
  Country: None (occurrence: None)
  Receive Date: 20080318
  Receipt Date: 20071115
  Transmission Date: 20081010
  Serious: Yes (Other)
  Sender: FDA-Public Use
  Company Number: 269393

PATIENT
  Sex: Female

DRUGS (1)
  1. NOVOSEVEN(EPTACOG ALFA (ACTIVATED)) POWDER AND SOLVENT FOR SOLUTION FO [Suspect]
     Indication: HAEMORRHAGE
     Dosage: INTRAVENOUS
     Route: 042

REACTIONS (1)
  - DEEP VEIN THROMBOSIS [None]
